FAERS Safety Report 7388460-8 (Version None)
Quarter: 2011Q2

REPORT INFORMATION
  Report Type: 
  Country: None (occurrence: None)
  Receive Date: 20110401
  Receipt Date: 20110317
  Transmission Date: 20111010
  Serious: Yes (Other)
  Sender: FDA-Public Use
  Company Number: PHHY2011FR23320

PATIENT
  Sex: Female

DRUGS (3)
  1. GLUCOPHAGE [Concomitant]
  2. TAREG [Suspect]
     Route: 048
  3. DIAMICRON [Concomitant]

REACTIONS (5)
  - HEADACHE [None]
  - CHILLS [None]
  - HEPATIC NEOPLASM [None]
  - LIVER DISORDER [None]
  - MUSCULOSKELETAL PAIN [None]
